FAERS Safety Report 22184297 (Version 1)
Quarter: 2023Q2

REPORT INFORMATION
  Report Type: Spontaneous
  Country: CN (occurrence: CN)
  Receive Date: 20230407
  Receipt Date: 20230407
  Transmission Date: 20230722
  Serious: Yes (Hospitalization, Other)
  Sender: FDA-Public Use
  Company Number: None

PATIENT
  Age: 52 Year
  Sex: Male
  Weight: 64 kg

DRUGS (1)
  1. CYCLOPHOSPHAMIDE [Suspect]
     Active Substance: CYCLOPHOSPHAMIDE
     Indication: Anti-neutrophil cytoplasmic antibody positive vasculitis
     Dosage: 0.8 G, QD, IMPULSE TREATMENT
     Route: 041
     Dates: start: 20230219, end: 20230219

REACTIONS (6)
  - Anti-neutrophil cytoplasmic antibody positive vasculitis [Unknown]
  - Vasculitis [Unknown]
  - Interstitial lung disease [Recovered/Resolved with Sequelae]
  - Pulmonary fibrosis [Recovered/Resolved with Sequelae]
  - Dyspnoea [Recovered/Resolved with Sequelae]
  - Symptom recurrence [Recovered/Resolved with Sequelae]

NARRATIVE: CASE EVENT DATE: 20230318
